FAERS Safety Report 22156180 (Version 1)
Quarter: 2023Q1

REPORT INFORMATION
  Report Type: Spontaneous
  Country: US (occurrence: US)
  Receive Date: 20230330
  Receipt Date: 20230330
  Transmission Date: 20230418
  Serious: Yes (Other)
  Sender: FDA-Public Use
  Company Number: US-OTSUKA-2023_007607

PATIENT
  Sex: Male
  Weight: 78.47 kg

DRUGS (3)
  1. ABILIFY MAINTENA [Suspect]
     Active Substance: ARIPIPRAZOLE
     Indication: Bipolar disorder
     Dosage: 400 MG
     Route: 065
  2. ABILIFY MAINTENA [Suspect]
     Active Substance: ARIPIPRAZOLE
     Dosage: 300 MG
     Route: 065
  3. ABILIFY [Suspect]
     Active Substance: ARIPIPRAZOLE
     Indication: Bipolar disorder
     Dosage: 20 MG
     Route: 065

REACTIONS (7)
  - Hallucination, auditory [Unknown]
  - Tardive dyskinesia [Unknown]
  - Phantom limb syndrome [Unknown]
  - Back pain [Unknown]
  - Injection site pain [Unknown]
  - Weight increased [Unknown]
  - Refusal of treatment by patient [Unknown]
